FAERS Safety Report 11341620 (Version 1)
Quarter: 2015Q3

REPORT INFORMATION
  Report Type: Report from Study
  Country: CL (occurrence: CL)
  Receive Date: 20150805
  Receipt Date: 20150805
  Transmission Date: 20151125
  Serious: Yes (Hospitalization, Other)
  Sender: FDA-Public Use
  Company Number: PHHY2015CL093798

PATIENT
  Sex: Male

DRUGS (1)
  1. CLOZARIL [Suspect]
     Active Substance: CLOZAPINE
     Indication: BIPOLAR DISORDER
     Dosage: BETWEEN 50 MG AND 100 MG QD
     Route: 065

REACTIONS (5)
  - Bipolar disorder [Unknown]
  - Delirium [Unknown]
  - Off label use [Unknown]
  - Hypomania [Unknown]
  - Disease recurrence [Unknown]
